FAERS Safety Report 13998435 (Version 1)
Quarter: 2017Q3

REPORT INFORMATION
  Report Type: Spontaneous
  Country: GB (occurrence: GB)
  Receive Date: 20170922
  Receipt Date: 20170922
  Transmission Date: 20171128
  Serious: Yes (Other)
  Sender: FDA-Public Use
  Company Number: GB-009507513-1709GBR007504

PATIENT
  Age: 56 Year
  Sex: Female

DRUGS (1)
  1. INTRON A [Suspect]
     Active Substance: INTERFERON ALFA-2B
     Dosage: 9 MU, ALTERNATE DAYS

REACTIONS (3)
  - Foot operation [Unknown]
  - Circumstance or information capable of leading to medication error [Unknown]
  - Expired product administered [Unknown]

NARRATIVE: CASE EVENT DATE: 2017
